FAERS Safety Report 15989206 (Version 3)
Quarter: 2019Q1

REPORT INFORMATION
  Report Type: Report from Study
  Country: CO (occurrence: CO)
  Receive Date: 20190221
  Receipt Date: 20190322
  Transmission Date: 20190418
  Serious: Yes (Life-Threatening, Hospitalization, Other)
  Sender: FDA-Public Use
  Company Number: CO-AMGEN-COLSL2019022020

PATIENT
  Age: 74 Year
  Sex: Male

DRUGS (1)
  1. VECTIBIX [Suspect]
     Active Substance: PANITUMUMAB
     Indication: COLORECTAL CANCER METASTATIC
     Dosage: 372 MG, Q2WK
     Route: 042
     Dates: start: 20190121

REACTIONS (5)
  - Rash pruritic [Recovering/Resolving]
  - Secretion discharge [Not Recovered/Not Resolved]
  - Urinary retention [Recovering/Resolving]
  - Constipation [Recovering/Resolving]
  - Colectomy [Recovering/Resolving]

NARRATIVE: CASE EVENT DATE: 20190121
